FAERS Safety Report 7829491-0 (Version None)
Quarter: 2011Q4

REPORT INFORMATION
  Report Type: 
  Country: None (occurrence: None)
  Receive Date: 20111020
  Receipt Date: 20111014
  Transmission Date: 20120403
  Serious: Yes (Hospitalization)
  Sender: FDA-Public Use
  Company Number: US-GILEAD-2011-0044741

PATIENT

DRUGS (3)
  1. ADCIRCA [Concomitant]
  2. REMODULIN [Concomitant]
  3. LETAIRIS [Suspect]
     Indication: PULMONARY HYPERTENSION
     Dosage: 10 MG, UNK
     Route: 048
     Dates: start: 20110519

REACTIONS (1)
  - PULMONARY HYPERTENSION [None]
